FAERS Safety Report 7406826-4 (Version None)
Quarter: 2011Q2

REPORT INFORMATION
  Report Type: 
  Country: None (occurrence: None)
  Receive Date: 20110411
  Receipt Date: 20110404
  Transmission Date: 20111010
  Serious: Yes (Hospitalization, Other)
  Sender: FDA-Public Use
  Company Number: US-PFIZER INC-US-WYE-H16286210

PATIENT
  Sex: Female
  Weight: 44 kg

DRUGS (3)
  1. EFFEXOR XR [Suspect]
     Indication: PAIN
     Dosage: UNKNOWN
     Route: 065
     Dates: end: 20100301
  2. NEURONTIN [Suspect]
     Indication: NEURALGIA
     Dosage: UNKNOWN
     Route: 065
     Dates: end: 20100301
  3. DURAGESIC [Concomitant]
     Indication: PAIN
     Dosage: UNKNOWN
     Route: 062

REACTIONS (2)
  - BLOOD SODIUM ABNORMAL [None]
  - DISCOMFORT [None]
